FAERS Safety Report 6739787-1 (Version None)
Quarter: 2010Q2

REPORT INFORMATION
  Report Type: 
  Country: None (occurrence: None)
  Receive Date: 20100525
  Receipt Date: 20100510
  Transmission Date: 20101027
  Serious: Yes (Hospitalization, Other)
  Sender: FDA-Public Use
  Company Number: PHFR2010GB00592

PATIENT
  Sex: Male

DRUGS (16)
  1. CLOZARIL [Suspect]
     Indication: SCHIZOPHRENIA
     Dosage: 400 MG, QD
     Dates: start: 19971106, end: 20020809
  2. CLOZARIL [Suspect]
     Dosage: 350 MG, QD
     Dates: start: 20020809, end: 20061122
  3. FLUPENTIXOL [Concomitant]
     Dosage: 50 MG, QW
  4. OLANZAPINE [Concomitant]
     Dosage: 5 MG, QD
  5. OLANZAPINE [Concomitant]
     Dosage: 10 MG, QD
     Dates: start: 20061003
  6. OLANZAPINE [Concomitant]
     Dosage: 10 MG, BID
  7. PROCYCLIDINE HYDROCHLORIDE 2MG TAB [Concomitant]
     Dosage: 10 MG, BID
  8. PROCYCLIDINE HYDROCHLORIDE 2MG TAB [Concomitant]
     Dosage: 5 MG, BID
     Dates: start: 20040824
  9. SULPIRIDE [Concomitant]
     Dosage: 200 MG, BID
  10. SERTRALINE HCL [Concomitant]
     Dosage: 50 MG, QD
     Dates: start: 20020809
  11. AMISULPRIDE [Concomitant]
  12. RISPERIDONE [Concomitant]
  13. HALOPERIDOL [Concomitant]
  14. QUETIAPINE [Concomitant]
  15. DEPAKOTE [Concomitant]
  16. CHLORPROMAZINE [Concomitant]

REACTIONS (16)
  - ABNORMAL BEHAVIOUR [None]
  - ACTIVITIES OF DAILY LIVING IMPAIRED [None]
  - AGGRESSION [None]
  - ANTISOCIAL BEHAVIOUR [None]
  - CONVULSION [None]
  - DELUSION [None]
  - DEPRESSED LEVEL OF CONSCIOUSNESS [None]
  - DEPRESSION [None]
  - INCORRECT DOSE ADMINISTERED [None]
  - INSOMNIA [None]
  - MENTAL IMPAIRMENT [None]
  - NEUTROPHIL COUNT DECREASED [None]
  - SELF INJURIOUS BEHAVIOUR [None]
  - SOCIAL AVOIDANT BEHAVIOUR [None]
  - TREATMENT NONCOMPLIANCE [None]
  - WHITE BLOOD CELL COUNT DECREASED [None]
